FAERS Safety Report 7903054-0 (Version None)
Quarter: 2011Q4

REPORT INFORMATION
  Report Type: 
  Country: None (occurrence: None)
  Receive Date: 20111109
  Receipt Date: 20110119
  Transmission Date: 20120403
  Serious: No
  Sender: FDA-Public Use
  Company Number: US-BAYER-201015506NA

PATIENT
  Age: 62 Year
  Sex: Male

DRUGS (5)
  1. TEMSIROLIMUS [Concomitant]
     Dosage: UNK
     Dates: start: 20090803, end: 20091130
  2. SUTENT [Concomitant]
     Dosage: 25 MG, QOD
     Dates: start: 20100108
  3. NEXAVAR [Suspect]
     Indication: RENAL CELL CARCINOMA
     Route: 048
     Dates: start: 20091208, end: 20091231
  4. ANTIHYPERTENSIVES [Concomitant]
  5. SUTENT [Concomitant]
     Indication: RENAL CELL CARCINOMA
     Dosage: 25 MG, QOD
     Dates: start: 20091116, end: 20091130

REACTIONS (12)
  - DYSPEPSIA [None]
  - HYPERKERATOSIS PALMARIS AND PLANTARIS [None]
  - ABDOMINAL PAIN UPPER [None]
  - NAIL GROWTH ABNORMAL [None]
  - ABDOMINAL PAIN [None]
  - GASTROOESOPHAGEAL REFLUX DISEASE [None]
  - ONYCHOCLASIS [None]
  - OEDEMA PERIPHERAL [None]
  - HAIR DISORDER [None]
  - ADVERSE DRUG REACTION [None]
  - SKIN DISCOLOURATION [None]
  - BLOOD PRESSURE INCREASED [None]
